FAERS Safety Report 9859515 (Version 1)
Quarter: 2014Q1

REPORT INFORMATION
  Report Type: Spontaneous
  Country: PL (occurrence: PL)
  Receive Date: 20140131
  Receipt Date: 20140131
  Transmission Date: 20141002
  Serious: Yes (Death, Other)
  Sender: FDA-Public Use
  Company Number: PL-PFIZER INC-2014029795

PATIENT
  Age: 19 Year
  Sex: Male

DRUGS (5)
  1. RIFAMPICIN [Suspect]
     Dosage: UNK
  2. ISONIAZID [Suspect]
     Dosage: UNK
  3. PYRAZINAMIDE [Suspect]
     Dosage: UNK
  4. KETOPROFEN [Suspect]
     Dosage: UNK
  5. ALCOHOL [Suspect]
     Dosage: UNK

REACTIONS (8)
  - Intentional overdose [Fatal]
  - Cardiogenic shock [Fatal]
  - Pulmonary oedema [Fatal]
  - Acute coronary syndrome [Unknown]
  - Electrocardiogram ST segment elevation [Unknown]
  - Dyspnoea [Unknown]
  - Pruritus [Unknown]
  - Red man syndrome [Unknown]
